FAERS Safety Report 5396893-4 (Version None)
Quarter: 2007Q3

REPORT INFORMATION
  Report Type: 
  Country: None (occurrence: None)
  Receive Date: 20070725
  Receipt Date: 20070720
  Transmission Date: 20080115
  Serious: Yes (Death, Hospitalization)
  Sender: FDA-Public Use
  Company Number: HQWYE934709JUL07

PATIENT
  Sex: Male
  Weight: 73 kg

DRUGS (3)
  1. RAPAMUNE [Suspect]
     Indication: PROPHYLAXIS AGAINST TRANSPLANT REJECTION
     Dates: start: 20070426, end: 20070702
  2. RANITIDINE [Concomitant]
     Dosage: UNSPECIFIED
     Dates: start: 20070528
  3. NEORAL [Concomitant]
     Dosage: 500 MG, FREQUENCY UNSPECIFIED

REACTIONS (2)
  - ACUTE RESPIRATORY FAILURE [None]
  - PNEUMONIA [None]
